FAERS Safety Report 8580438-1 (Version None)
Quarter: 2012Q3

REPORT INFORMATION
  Report Type: 
  Country: None (occurrence: None)
  Receive Date: 20120808
  Receipt Date: 20100207
  Transmission Date: 20120928
  Serious: Yes (Hospitalization, Other)
  Sender: FDA-Public Use
  Company Number: ZA-ROCHE-1098409

PATIENT
  Sex: Male

DRUGS (3)
  1. NEORECORMON [Suspect]
     Indication: PRODUCT USED FOR UNKNOWN INDICATION
     Route: 058
  2. MIRCERA [Suspect]
     Indication: PRODUCT USED FOR UNKNOWN INDICATION
     Route: 058
  3. NEORECORMON [Suspect]
     Route: 058

REACTIONS (4)
  - MYOCARDIAL INFARCTION [None]
  - DEVICE RELATED INFECTION [None]
  - PULMONARY OEDEMA [None]
  - FLUID RETENTION [None]
